FAERS Safety Report 20700648 (Version 4)
Quarter: 2022Q2

REPORT INFORMATION
  Report Type: Spontaneous
  Country: HU (occurrence: HU)
  Receive Date: 20220412
  Receipt Date: 20220628
  Transmission Date: 20220720
  Serious: Yes (Life-Threatening, Hospitalization, Other)
  Sender: FDA-Public Use
  Company Number: HU-BRISTOL-MYERS SQUIBB COMPANY-2022-016856

PATIENT
  Age: 78 Year
  Sex: Male

DRUGS (12)
  1. ELIQUIS [Suspect]
     Active Substance: APIXABAN
     Indication: Cerebrovascular accident prophylaxis
     Dosage: 5 MG, 2X/DAY
     Route: 065
  2. ELIQUIS [Suspect]
     Active Substance: APIXABAN
     Dosage: 2.5 MG, 2X/DAY
     Route: 065
  3. ELIQUIS [Suspect]
     Active Substance: APIXABAN
     Dosage: 5 MG, 2X/DAY
     Route: 065
  4. ELIQUIS [Suspect]
     Active Substance: APIXABAN
     Dosage: 2.5 MG, 2X/DAY
     Route: 065
  5. ELIQUIS [Suspect]
     Active Substance: APIXABAN
     Dosage: 5 MG, 2X/DAY
     Route: 065
  6. ELIQUIS [Suspect]
     Active Substance: APIXABAN
     Dosage: 2.5 MG, 2X/DAY
     Route: 065
  7. CARBOPLATIN [Suspect]
     Active Substance: CARBOPLATIN
     Indication: Lung neoplasm
     Dosage: UNK
     Route: 065
  8. CARBOPLATIN [Suspect]
     Active Substance: CARBOPLATIN
     Dosage: UNK
     Route: 065
  9. CARBOPLATIN [Suspect]
     Active Substance: CARBOPLATIN
     Dosage: UNK
     Route: 065
  10. BEVACIZUMAB [Suspect]
     Active Substance: BEVACIZUMAB
     Indication: Lung neoplasm
     Dosage: UNK
     Route: 065
  11. TAXOL [Suspect]
     Active Substance: PACLITAXEL
     Indication: Lung neoplasm
     Dosage: UNK
     Route: 065
  12. CLOPIDOGREL BISULFATE [Concomitant]
     Active Substance: CLOPIDOGREL BISULFATE
     Dosage: UNK
     Route: 065

REACTIONS (3)
  - Epistaxis [Recovered/Resolved]
  - Neuropathy peripheral [Unknown]
  - Anaemia [Unknown]

NARRATIVE: CASE EVENT DATE: 20220330
